FAERS Safety Report 19912811 (Version 1)
Quarter: 2021Q4

REPORT INFORMATION
  Report Type: Spontaneous
  Country: US (occurrence: US)
  Receive Date: 20211004
  Receipt Date: 20211004
  Transmission Date: 20220303
  Serious: No
  Sender: FDA-Public Use
  Company Number: US-PFIZER INC-2021868528

PATIENT
  Age: 46 Year
  Sex: Female

DRUGS (1)
  1. EUCRISA [Suspect]
     Active Substance: CRISABOROLE
     Dosage: UNK, AS NEEDED
     Route: 061

REACTIONS (8)
  - Infection [Unknown]
  - Psoriasis [Unknown]
  - Application site pain [Unknown]
  - Skin exfoliation [Unknown]
  - Skin infection [Unknown]
  - Dermatitis [Unknown]
  - Pain [Unknown]
  - Blister [Unknown]
